FAERS Safety Report 9694038 (Version 4)
Quarter: 2013Q4

REPORT INFORMATION
  Report Type: Report from Study
  Country: CA (occurrence: CA)
  Receive Date: 20131118
  Receipt Date: 20131218
  Transmission Date: 20140711
  Serious: Yes (Other)
  Sender: FDA-Public Use
  Company Number: CA-ABBVIE-13P-028-1169162-00

PATIENT
  Age: 35 Year
  Sex: Female

DRUGS (1)
  1. HUMIRA [Suspect]
     Indication: CROHN^S DISEASE
     Route: 058
     Dates: start: 20120403

REACTIONS (6)
  - Deafness [Recovering/Resolving]
  - Tinnitus [Not Recovered/Not Resolved]
  - Eczema [Recovering/Resolving]
  - Hypoaesthesia [Not Recovered/Not Resolved]
  - Cerumen impaction [Recovered/Resolved]
  - Eczema [Recovering/Resolving]
